FAERS Safety Report 4662400-4 (Version None)
Quarter: 2005Q2

REPORT INFORMATION
  Report Type: 
  Country: None (occurrence: None)
  Receive Date: 20050512
  Receipt Date: 20041119
  Transmission Date: 20051028
  Serious: Yes (Congenital Anomaly)
  Sender: FDA-Public Use
  Company Number: 2005-05-0002

PATIENT
  Sex: Female

DRUGS (7)
  1. BECLOMETHASONE DIPROPIONATE [Suspect]
  2. RANITIDINE [Suspect]
     Dosage: TRANSPLACENTAL
     Route: 064
     Dates: start: 20030617
  3. INFLUENZA VIRUS VACCINE [Suspect]
     Dates: start: 20031016
  4. AMOXICILLIN [Suspect]
     Dosage: TRANSPLACENTAL
     Route: 064
     Dates: start: 20030811, end: 20030818
  5. IRON [Suspect]
     Dosage: TRANSPLACENTAL
     Route: 064
     Dates: start: 20030924, end: 20031204
  6. PERMETHRIN [Suspect]
     Dosage: TRANSPLACENTAL
     Route: 064
     Dates: start: 20030916
  7. SALBUTAMOL [Suspect]

REACTIONS (3)
  - CONGENITAL ANOMALY [None]
  - DRUG EXPOSURE DURING PREGNANCY [None]
  - TALIPES [None]
